FAERS Safety Report 12196693 (Version 1)
Quarter: 2016Q1

REPORT INFORMATION
  Report Type: Report from Study
  Country: CA (occurrence: CA)
  Receive Date: 20160321
  Receipt Date: 20160321
  Transmission Date: 20160526
  Serious: Yes (Other)
  Sender: FDA-Public Use
  Company Number: CA-ABBVIE-16K-028-1583109-00

PATIENT
  Sex: Male
  Weight: 89.44 kg

DRUGS (1)
  1. KALETRA [Suspect]
     Active Substance: LOPINAVIR\RITONAVIR
     Indication: HIV INFECTION
     Dosage: LOPINAVIR 200 MG/RITONAVIR 50 MG
     Route: 048
     Dates: start: 20060101

REACTIONS (2)
  - Adverse reaction [Unknown]
  - Neoplasm malignant [Unknown]
